FAERS Safety Report 4691886-4 (Version None)
Quarter: 2005Q2

REPORT INFORMATION
  Report Type: 
  Country: None (occurrence: None)
  Receive Date: 20050615
  Receipt Date: 20050615
  Transmission Date: 20051028
  Serious: Yes (Other)
  Sender: FDA-Public Use
  Company Number: None

PATIENT
  Age: 44 Year
  Sex: Female
  Weight: 58.0604 kg

DRUGS (1)
  1. LUTERA 28 DAY PACK PATHEON (WATSON) [Suspect]
     Dosage: ONE TABLET DAILY BY MOUTH DAILY
     Dates: start: 20050529, end: 20050609

REACTIONS (2)
  - METRORRHAGIA [None]
  - MUSCLE SPASMS [None]
